APPROVED DRUG PRODUCT: FML
Active Ingredient: FLUOROMETHOLONE
Strength: 0.1%
Dosage Form/Route: OINTMENT;OPHTHALMIC
Application: N017760 | Product #001
Applicant: ALLERGAN PHARMACEUTICAL
Approved: Sep 4, 1985 | RLD: Yes | RS: No | Type: DISCN